FAERS Safety Report 21400967 (Version 1)
Quarter: 2022Q4

REPORT INFORMATION
  Report Type: Spontaneous
  Country: US (occurrence: US)
  Receive Date: 20221003
  Receipt Date: 20221003
  Transmission Date: 20230113
  Serious: Yes (Other)
  Sender: FDA-Public Use
  Company Number: US-SUN PHARMACEUTICAL INDUSTRIES LTD-2022R1-357029

PATIENT
  Age: 56 Year
  Sex: Female

DRUGS (4)
  1. TOPIRAMATE [Suspect]
     Active Substance: TOPIRAMATE
     Indication: Product used for unknown indication
     Dosage: 75 MILLIGRAM, DAILY
     Route: 048
  2. SERTRALINE [Concomitant]
     Active Substance: SERTRALINE HYDROCHLORIDE
     Indication: Product used for unknown indication
     Dosage: 250 MILLIGRAM, DAILY
     Route: 048
  3. DISULFIRAM [Concomitant]
     Active Substance: DISULFIRAM
     Indication: Product used for unknown indication
     Dosage: 250 MG
     Route: 048
  4. NALTREXONE [Concomitant]
     Active Substance: NALTREXONE
     Indication: Product used for unknown indication
     Dosage: 380 MILLIGRAM, MONTHLY
     Route: 030

REACTIONS (3)
  - Vitamin B1 decreased [Unknown]
  - Wernicke^s encephalopathy [Unknown]
  - Weight decreased [Unknown]
